FAERS Safety Report 21547170 (Version 1)
Quarter: 2022Q4

REPORT INFORMATION
  Report Type: Spontaneous
  Country: US (occurrence: US)
  Receive Date: 20221103
  Receipt Date: 20221103
  Transmission Date: 20230113
  Serious: Yes (Hospitalization, Other)
  Sender: FDA-Public Use
  Company Number: US-MLMSERVICE-20221018-3866301-1

PATIENT
  Age: 45 Year
  Sex: Male
  Weight: 62.2 kg

DRUGS (1)
  1. AMLODIPINE [Suspect]
     Active Substance: AMLODIPINE BESYLATE

REACTIONS (3)
  - Bradycardia [Recovering/Resolving]
  - Cardiogenic shock [Recovering/Resolving]
  - Overdose [Unknown]
